FAERS Safety Report 16636282 (Version 1)
Quarter: 2019Q3

REPORT INFORMATION
  Report Type: Spontaneous
  Country: FR (occurrence: FR)
  Receive Date: 20190726
  Receipt Date: 20190726
  Transmission Date: 20191004
  Serious: Yes (Hospitalization)
  Sender: FDA-Public Use
  Company Number: FR-MYLANLABS-2019M1069150

PATIENT
  Age: 55 Year
  Sex: Male
  Weight: 64 kg

DRUGS (2)
  1. CARBOPLATIN. [Suspect]
     Active Substance: CARBOPLATIN
     Indication: OROPHARYNGEAL SQUAMOUS CELL CARCINOMA
     Dosage: 675 MILLIGRAM, CYCLE
     Route: 041
     Dates: start: 20120911
  2. ETOPOSIDE. [Suspect]
     Active Substance: ETOPOSIDE
     Indication: OROPHARYNGEAL SQUAMOUS CELL CARCINOMA
     Dosage: 516 MILLIGRAM, CYCLE
     Route: 041
     Dates: start: 20120911

REACTIONS (2)
  - Dysphagia [Recovered/Resolved]
  - Bicytopenia [Recovered/Resolved]

NARRATIVE: CASE EVENT DATE: 20121016
